FAERS Safety Report 8071823-5 (Version None)
Quarter: 2012Q1

REPORT INFORMATION
  Report Type: 
  Country: None (occurrence: None)
  Receive Date: 20120126
  Receipt Date: 20120117
  Transmission Date: 20120608
  Serious: No
  Sender: FDA-Public Use
  Company Number: US-BIOGENIDEC-2012BI002023

PATIENT
  Age: 22 Year
  Sex: Female

DRUGS (3)
  1. BOTOX [Concomitant]
     Indication: MIGRAINE
  2. STEROIDS (NOS) [Concomitant]
     Indication: MIGRAINE
  3. TYSABRI [Suspect]
     Indication: MULTIPLE SCLEROSIS
     Route: 042
     Dates: start: 20091006

REACTIONS (1)
  - MIGRAINE [None]
